FAERS Safety Report 17967505 (Version 1)
Quarter: 2020Q3

REPORT INFORMATION
  Report Type: Spontaneous
  Country: RU (occurrence: RU)
  Receive Date: 20200701
  Receipt Date: 20200701
  Transmission Date: 20201103
  Serious: Yes (Life-Threatening)
  Sender: FDA-Public Use
  Company Number: RU-DRREDDYS-RUS/RUS/20/0124577

PATIENT
  Age: 30 Year
  Sex: Female

DRUGS (2)
  1. CAPOTEN [Suspect]
     Active Substance: CAPTOPRIL
     Indication: PRODUCT USED FOR UNKNOWN INDICATION
     Route: 048
     Dates: start: 20190901, end: 20190901
  2. CETRINE 10 MG [Suspect]
     Active Substance: CETIRIZINE HYDROCHLORIDE
     Indication: PRODUCT USED FOR UNKNOWN INDICATION
     Route: 048
     Dates: start: 20190901, end: 20190901

REACTIONS (5)
  - Headache [Recovered/Resolved]
  - Suicide attempt [Recovered/Resolved]
  - Exposure during pregnancy [Unknown]
  - Somnolence [Recovered/Resolved]
  - Toxicity to various agents [Recovered/Resolved]

NARRATIVE: CASE EVENT DATE: 20190901
